FAERS Safety Report 19743570 (Version 7)
Quarter: 2022Q1

REPORT INFORMATION
  Report Type: Spontaneous
  Country: BR (occurrence: BR)
  Receive Date: 20210824
  Receipt Date: 20220317
  Transmission Date: 20220423
  Serious: Yes (Hospitalization, Disabling, Other)
  Sender: FDA-Public Use
  Company Number: BR-BIOMARINAP-BR-2021-138213

PATIENT
  Age: 16 Year
  Sex: Female
  Weight: 23.2 kg

DRUGS (2)
  1. ALDURAZYME [Suspect]
     Active Substance: LARONIDASE
     Indication: Mucopolysaccharidosis
     Dosage: 10 MG, Q15D
     Route: 042
     Dates: start: 20060101
  2. CAPTOPRIL [Concomitant]
     Active Substance: CAPTOPRIL

REACTIONS (19)
  - Polyuria [Unknown]
  - Bedridden [Recovering/Resolving]
  - Condition aggravated [Recovering/Resolving]
  - Gait inability [Recovering/Resolving]
  - Hydrocephalus [Recovering/Resolving]
  - Spinal deformity [Recovering/Resolving]
  - Movement disorder [Not Recovered/Not Resolved]
  - Spinal disorder [Not Recovered/Not Resolved]
  - Asthenia [Not Recovered/Not Resolved]
  - Condition aggravated [Not Recovered/Not Resolved]
  - Degenerative bone disease [Not Recovered/Not Resolved]
  - Condition aggravated [Not Recovered/Not Resolved]
  - Atrophy [Unknown]
  - Umbilical hernia [Not Recovered/Not Resolved]
  - Poor venous access [Unknown]
  - Abdominal pain [Recovered/Resolved]
  - Procedural pain [Recovered/Resolved]
  - Inappropriate schedule of product administration [Unknown]
  - Catheter placement [Recovering/Resolving]

NARRATIVE: CASE EVENT DATE: 20060101
